FAERS Safety Report 12404539 (Version 1)
Quarter: 2016Q2

REPORT INFORMATION
  Report Type: Spontaneous
  Country: JP (occurrence: JP)
  Receive Date: 20160525
  Receipt Date: 20160525
  Transmission Date: 20160815
  Serious: Yes (Other)
  Sender: FDA-Public Use
  Company Number: JP-FRESENIUS KABI-FK201602921

PATIENT
  Age: 35 Year
  Sex: Male

DRUGS (8)
  1. PSL (PREDNISOLONE) [Suspect]
     Active Substance: PREDNISOLONE
     Indication: METASTASES TO MENINGES
  2. PSL (PREDNISOLONE) [Suspect]
     Active Substance: PREDNISOLONE
     Indication: GASTRIC CANCER
  3. CYTARABINE (MANUFACTURER UNKNOWN) [Suspect]
     Active Substance: CYTARABINE
     Indication: GASTRIC CANCER
  4. GIMERACIL/OTERACIL/TEGAFUR [Suspect]
     Active Substance: GIMERACIL\OTERACIL\TEGAFUR
     Indication: GASTRIC CANCER
     Route: 048
  5. METHOTREXATE [Suspect]
     Active Substance: METHOTREXATE
     Indication: GASTRIC CANCER
  6. METHOTREXATE [Suspect]
     Active Substance: METHOTREXATE
     Indication: METASTASES TO MENINGES
     Route: 037
  7. CYTARABINE (MANUFACTURER UNKNOWN) [Suspect]
     Active Substance: CYTARABINE
     Indication: METASTASES TO MENINGES
     Route: 037
  8. CISPLATIN. [Suspect]
     Active Substance: CISPLATIN
     Indication: GASTRIC CANCER
     Route: 042

REACTIONS (2)
  - Renal impairment [Unknown]
  - Leukoencephalopathy [Unknown]
